FAERS Safety Report 9057535 (Version 1)
Quarter: 2013Q1

REPORT INFORMATION
  Report Type: Spontaneous
  Country: US (occurrence: None)
  Receive Date: 20130204
  Receipt Date: 20130204
  Transmission Date: 20140127
  Serious: Yes (Life-Threatening, Hospitalization)
  Sender: FDA-Public Use
  Company Number: None

PATIENT
  Age: 68 Year
  Sex: Female
  Weight: 95.9 kg

DRUGS (1)
  1. VERAPAMIL [Suspect]
     Indication: ATRIAL FLUTTER
     Route: 048
     Dates: start: 20130110, end: 20130110

REACTIONS (4)
  - Hypotension [None]
  - Bradycardia [None]
  - Cardiac arrest [None]
  - Overdose [None]
